FAERS Safety Report 6982690-2 (Version None)
Quarter: 2010Q3

REPORT INFORMATION
  Report Type: 
  Country: None (occurrence: None)
  Receive Date: 20100914
  Receipt Date: 20100318
  Transmission Date: 20110219
  Serious: No
  Sender: FDA-Public Use
  Company Number: US-PFIZER INC-2010035283

PATIENT
  Sex: Female
  Weight: 96.145 kg

DRUGS (2)
  1. LYRICA [Suspect]
     Indication: SPONDYLOLISTHESIS
     Dosage: 100 MG, 3X/DAY
     Route: 048
     Dates: start: 20100201
  2. LYRICA [Suspect]
     Indication: SPINAL COLUMN STENOSIS
     Dosage: 50 MG, 3X/DAY
     Route: 048
     Dates: start: 20100101, end: 20100201

REACTIONS (1)
  - WEIGHT INCREASED [None]
